FAERS Safety Report 4868087-X (Version None)
Quarter: 2005Q4

REPORT INFORMATION
  Report Type: 
  Country: None (occurrence: None)
  Receive Date: 20051229
  Receipt Date: 20051220
  Transmission Date: 20060501
  Serious: Yes (Other)
  Sender: FDA-Public Use
  Company Number: PHFR2005GB04130

PATIENT
  Sex: Female

DRUGS (5)
  1. CARBAMAZEPINE [Suspect]
     Route: 065
  2. MADOPAR [Concomitant]
     Route: 065
  3. SENNA [Concomitant]
     Route: 065
  4. LACTULOSE [Concomitant]
     Route: 065
  5. QUETIAPINE FUMARATE [Concomitant]
     Route: 065

REACTIONS (1)
  - PSYCHOTIC DISORDER [None]
